FAERS Safety Report 8486948-X (Version None)
Quarter: 2012Q3

REPORT INFORMATION
  Report Type: 
  Country: None (occurrence: None)
  Receive Date: 20120704
  Receipt Date: 20120619
  Transmission Date: 20120928
  Serious: Yes (Other)
  Sender: FDA-Public Use
  Company Number: CHPA2012US013493

PATIENT
  Sex: Female

DRUGS (2)
  1. EXCEDRIN EXTRA STRENGTH TABLETS [Suspect]
     Indication: MIGRAINE
     Dosage: 1-2 DF, 1-2 TIMES A DAY, ALMOST EVERY DAY
     Route: 048
     Dates: start: 20110101, end: 20120617
  2. ACETAMINOPHEN [Concomitant]

REACTIONS (14)
  - DIZZINESS [None]
  - HYPOGLYCAEMIA [None]
  - SYNCOPE [None]
  - DECREASED APPETITE [None]
  - FEAR [None]
  - DIABETES MELLITUS [None]
  - GASTRIC HAEMORRHAGE [None]
  - BLOOD PRESSURE INCREASED [None]
  - ABNORMAL BEHAVIOUR [None]
  - VISUAL IMPAIRMENT [None]
  - UNDERDOSE [None]
  - INSOMNIA [None]
  - HALLUCINATION [None]
  - TREMOR [None]
